FAERS Safety Report 8372903-7 (Version None)
Quarter: 2012Q2

REPORT INFORMATION
  Report Type: 
  Country: None (occurrence: None)
  Receive Date: 20120521
  Receipt Date: 20120510
  Transmission Date: 20120825
  Serious: Yes (Other)
  Sender: FDA-Public Use
  Company Number: JP-SANOFI-AVENTIS-2012SA034223

PATIENT
  Age: 80 Year
  Sex: Female
  Weight: 40 kg

DRUGS (5)
  1. PLAVIX [Suspect]
     Route: 048
  2. FOIPAN [Concomitant]
     Indication: PANCREATIC DISORDER
     Dosage: STRENGTH: 100MG
     Route: 048
  3. PLAVIX [Suspect]
     Indication: CEREBROVASCULAR ACCIDENT PROPHYLAXIS
     Route: 048
     Dates: start: 20120101
  4. ALL OTHER THERAPEUTIC PRODUCTS [Concomitant]
     Indication: POLYMYOSITIS
  5. PREDNISOLONE [Concomitant]
     Indication: POLYMYOSITIS

REACTIONS (3)
  - HAEMORRHAGE SUBCUTANEOUS [None]
  - VARICOSE VEIN [None]
  - MUSCLE SPASMS [None]
